FAERS Safety Report 11443331 (Version 3)
Quarter: 2015Q4

REPORT INFORMATION
  Report Type: Spontaneous
  Country: US (occurrence: US)
  Receive Date: 20150901
  Receipt Date: 20151009
  Transmission Date: 20160304
  Serious: No
  Sender: FDA-Public Use
  Company Number: US-PFIZER INC-2015289274

PATIENT
  Age: 62 Year
  Sex: Female

DRUGS (1)
  1. DAYPRO [Suspect]
     Active Substance: OXAPROZIN
     Indication: ARTHRITIS
     Dosage: UNK

REACTIONS (1)
  - Drug hypersensitivity [Recovered/Resolved]
